FAERS Safety Report 10009964 (Version 1)
Quarter: 2014Q1

REPORT INFORMATION
  Report Type: Spontaneous
  Country: US (occurrence: US)
  Receive Date: 20140312
  Receipt Date: 20140312
  Transmission Date: 20141002
  Serious: No
  Sender: FDA-Public Use
  Company Number: US-INCYTE CORPORATION-2013IN000857

PATIENT
  Age: 70 Year
  Sex: Female

DRUGS (9)
  1. JAKAFI [Suspect]
     Indication: MYELOFIBROSIS
     Dosage: 15 MG, BID
     Route: 048
     Dates: start: 201303, end: 2013
  2. JAKAFI [Suspect]
     Dosage: 10 MG, BID
     Route: 048
     Dates: start: 2013
  3. TRAZODONE [Concomitant]
  4. LEXAPRO [Concomitant]
  5. LASIX [Concomitant]
  6. MULTIVITAMINS [Concomitant]
  7. PROTONIX [Concomitant]
  8. BRONCHODIALATORS [Concomitant]
  9. OXYGEN [Concomitant]

REACTIONS (2)
  - Dizziness [Recovering/Resolving]
  - Fall [Unknown]
